FAERS Safety Report 7089335-4 (Version None)
Quarter: 2010Q4

REPORT INFORMATION
  Report Type: 
  Country: None (occurrence: None)
  Receive Date: 20101108
  Receipt Date: 20101103
  Transmission Date: 20110411
  Serious: Yes (Life-Threatening)
  Sender: FDA-Public Use
  Company Number: ZA-B.I. PHARMACEUTICALS,INC./RIDGEFIELD-2010-ZA-00113ZA

PATIENT
  Age: 70 Year
  Sex: Female
  Weight: 72 kg

DRUGS (6)
  1. CO-MICARDIS [Suspect]
     Indication: HYPERTENSION
     Dosage: 80 MG
     Route: 048
     Dates: start: 20100601, end: 20100629
  2. ELTROXIN [Concomitant]
     Indication: HYPOTHYROIDISM
     Dosage: 0.1 MG
     Route: 048
  3. TOPZOLE [Concomitant]
     Indication: GASTROOESOPHAGEAL REFLUX DISEASE
     Dosage: 20 MG
     Route: 048
  4. CRESTOR [Concomitant]
     Indication: HYPERCHOLESTEROLAEMIA
     Dosage: 5 MG
     Route: 048
  5. RIDAQ [Concomitant]
     Indication: OEDEMA
     Dosage: 25 MG
     Route: 048
  6. ZANIDIP [Concomitant]
     Indication: HYPERTENSION
     Dosage: 10 MG
     Route: 048

REACTIONS (6)
  - COLD SWEAT [None]
  - DISORIENTATION [None]
  - HEADACHE [None]
  - HYPERTENSION [None]
  - MALAISE [None]
  - NAUSEA [None]
